FAERS Safety Report 12843189 (Version 1)
Quarter: 2016Q4

REPORT INFORMATION
  Report Type: Spontaneous
  Country: US (occurrence: US)
  Receive Date: 20161013
  Receipt Date: 20161013
  Transmission Date: 20170207
  Serious: No
  Sender: FDA-Public Use
  Company Number: US-GLAXOSMITHKLINE-US2016149476

PATIENT
  Age: 62 Year
  Sex: Female

DRUGS (5)
  1. PROLIA [Concomitant]
     Active Substance: DENOSUMAB
  2. PREMARIN CREAM [Concomitant]
  3. LAMOTRIGINE PROLONGED-RELEASE TABLET [Suspect]
     Active Substance: LAMOTRIGINE
     Indication: SEIZURE
     Dosage: 100 MG, QD
     Route: 048
     Dates: start: 201604
  4. CALCIUM CITRATE [Concomitant]
     Active Substance: CALCIUM CITRATE
  5. PLAVIX [Concomitant]
     Active Substance: CLOPIDOGREL BISULFATE

REACTIONS (8)
  - Tremor [Recovering/Resolving]
  - Alopecia [Recovering/Resolving]
  - Drug ineffective [Recovered/Resolved]
  - Feeling jittery [Recovering/Resolving]
  - Irritability [Recovered/Resolved]
  - Vaginal infection [Recovering/Resolving]
  - Anorgasmia [Not Recovered/Not Resolved]
  - Tongue disorder [Recovering/Resolving]

NARRATIVE: CASE EVENT DATE: 201604
